FAERS Safety Report 15164393 (Version 3)
Quarter: 2018Q4

REPORT INFORMATION
  Report Type: Spontaneous
  Country: DE (occurrence: DE)
  Receive Date: 20180719
  Receipt Date: 20181226
  Transmission Date: 20190204
  Serious: Yes (Hospitalization, Other)
  Sender: FDA-Public Use
  Company Number: DE-AUROBINDO-AUR-APL-2018-036204

PATIENT
  Age: 29 Year
  Sex: Male

DRUGS (14)
  1. MIRTAZAPINE. [Suspect]
     Active Substance: MIRTAZAPINE
     Dosage: DOSAGE FORM: UNKNOWN
     Route: 048
     Dates: start: 20170515, end: 20170517
  2. MIRTAZAPINE. [Suspect]
     Active Substance: MIRTAZAPINE
     Dosage: DOSAGE FORM: UNKNOWN
     Route: 048
     Dates: start: 20170609, end: 20170611
  3. LORAZEPAM. [Concomitant]
     Active Substance: LORAZEPAM
     Indication: PRODUCT USED FOR UNKNOWN INDICATION
     Dosage: UNK DAILY, DOSAGE FORM: UNSPECIFIED, 0.5 - 3 MG
     Route: 048
     Dates: start: 20170424, end: 20170604
  4. PIPAMPERON [Suspect]
     Active Substance: PIPAMPERONE HYDROCHLORIDE
     Dosage: 100 MILLIGRAM, DAILY, DOSAGE FORM: UNSPECIFIED
     Route: 048
     Dates: start: 20170513, end: 20170514
  5. MIRTAZAPINE. [Suspect]
     Active Substance: MIRTAZAPINE
     Indication: PRODUCT USED FOR UNKNOWN INDICATION
     Dosage: DOSAGE FORM: UNKNOWN
     Route: 048
     Dates: start: 20170331, end: 20170514
  6. RISPERIDONE. [Suspect]
     Active Substance: RISPERIDONE
     Indication: PRODUCT USED FOR UNKNOWN INDICATION
     Dosage: DOSAGE FORM: UNSPECIFIED, 3-4 MG ()
     Route: 048
     Dates: start: 20170424, end: 20170425
  7. PIPAMPERON [Suspect]
     Active Substance: PIPAMPERONE HYDROCHLORIDE
     Dosage: DOSAGE FORM: UNSPECIFIED
     Route: 048
     Dates: start: 20170518
  8. MIRTAZAPINE. [Suspect]
     Active Substance: MIRTAZAPINE
     Dosage: DOSAGE FORM: UNKNOWN
     Route: 048
     Dates: start: 20170518, end: 20170608
  9. RISPERIDONE. [Suspect]
     Active Substance: RISPERIDONE
     Indication: ABNORMAL BEHAVIOUR
     Dosage: DOSAGE FORM: UNSPECIFIED, 0.5-1 MG
     Route: 048
     Dates: start: 20170412, end: 20170419
  10. RISPERIDONE. [Suspect]
     Active Substance: RISPERIDONE
     Indication: MENTAL DISORDER
     Dosage: 1 MILLIGRAM, DOSAGE FORM: UNSPECIFIED
     Route: 048
     Dates: start: 20170420, end: 20170423
  11. RISPERIDONE. [Suspect]
     Active Substance: RISPERIDONE
     Indication: DRUG DEPENDENCE
     Dosage: DOSAGE FORM: UNSPECIFIED
     Route: 048
     Dates: start: 20170426
  12. PIPAMPERON [Suspect]
     Active Substance: PIPAMPERONE HYDROCHLORIDE
     Dosage: DOSAGE FORM: UNSPECIFIED
     Route: 048
     Dates: start: 20170515, end: 20170517
  13. PIPAMPERON [Suspect]
     Active Substance: PIPAMPERONE HYDROCHLORIDE
     Indication: PRODUCT USED FOR UNKNOWN INDICATION
     Dosage: DOSAGE FORM: UNSPECIFIED
     Route: 048
     Dates: start: 20170503, end: 20170512
  14. PIPAMPERON [Suspect]
     Active Substance: PIPAMPERONE HYDROCHLORIDE
     Dosage: 40 MILLIGRAM, DAILY, DOSAGE FORM: UNSPECIFIED
     Route: 048
     Dates: start: 20170519

REACTIONS (3)
  - Off label use [Unknown]
  - Hepatic enzyme increased [Recovered/Resolved]
  - Product use in unapproved indication [Unknown]

NARRATIVE: CASE EVENT DATE: 20170412
